FAERS Safety Report 12461770 (Version 9)
Quarter: 2017Q1

REPORT INFORMATION
  Report Type: Spontaneous
  Country: RO (occurrence: RO)
  Receive Date: 20160613
  Receipt Date: 20170328
  Transmission Date: 20170428
  Serious: Yes (Hospitalization, Other)
  Sender: FDA-Public Use
  Company Number: RO-TAKEDA-2016MPI003606

PATIENT
  Age: 81 Year
  Sex: Male
  Weight: 86 kg

DRUGS (21)
  1. PREDNISONE. [Suspect]
     Active Substance: PREDNISONE
     Indication: PLASMA CELL MYELOMA
     Dosage: 120 MG, UNK
     Route: 048
     Dates: start: 20160225, end: 20160228
  2. PREDNISONE. [Suspect]
     Active Substance: PREDNISONE
     Dosage: 120 MG, UNK
     Route: 048
     Dates: start: 20160407, end: 20160410
  3. DEXAMETHASONE. [Suspect]
     Active Substance: DEXAMETHASONE
     Indication: PLASMA CELL MYELOMA
     Dosage: 16 MG, QD
     Route: 042
     Dates: start: 20160225, end: 20160517
  4. PRESTARIUM                         /00790701/ [Concomitant]
     Active Substance: PERINDOPRIL
     Indication: HYPERTENSION
     Dosage: 5 MG, BID
     Route: 048
  5. SULPERAZON [Concomitant]
     Active Substance: CEFOPERAZONE SODIUM\SULBACTAM SODIUM
     Indication: CELLULITIS
     Dosage: 1 G, BID
     Route: 042
     Dates: start: 20160317
  6. CONTROLOC [Concomitant]
     Active Substance: PANTOPRAZOLE SODIUM
     Dosage: 80 MG, BID
     Route: 042
     Dates: start: 20160506, end: 20160510
  7. OMEPRAZOLUM [Concomitant]
     Indication: HAEMATEMESIS
     Dosage: 40 MG, BID
     Route: 048
     Dates: start: 20160426, end: 20160506
  8. GLUCOSE [Concomitant]
     Active Substance: DEXTROSE
     Indication: VOMITING
     Dosage: 500 ML, BID
     Route: 065
     Dates: start: 20160506
  9. MELPHALAN [Suspect]
     Active Substance: MELPHALAN
     Indication: PLASMA CELL MYELOMA
     Dosage: 12 MG, QD
     Route: 048
     Dates: start: 20160225, end: 20160228
  10. MELPHALAN [Suspect]
     Active Substance: MELPHALAN
     Dosage: 12 MG, UNK
     Route: 048
     Dates: start: 20160407, end: 20160410
  11. VELCADE [Suspect]
     Active Substance: BORTEZOMIB
     Indication: PLASMA CELL MYELOMA
     Dosage: 2.6 MG, QD
     Route: 058
     Dates: start: 20160225, end: 20160410
  12. PENTOXI [Concomitant]
     Indication: HYPERTENSION
     Dosage: 400 MG, UNK
     Route: 048
  13. CONTROLOC [Concomitant]
     Active Substance: PANTOPRAZOLE SODIUM
     Dosage: 80 MG, BID
     Route: 042
     Dates: start: 20160506, end: 20160510
  14. VELCADE [Suspect]
     Active Substance: BORTEZOMIB
     Dosage: 2.6 MG, QD
     Route: 058
     Dates: end: 20160505
  15. METOCLOPRAMIDE. [Concomitant]
     Active Substance: METOCLOPRAMIDE
     Indication: VOMITING
     Dosage: 10 MG, TID
     Route: 042
     Dates: start: 20160506, end: 20160510
  16. OMEPRAZOLE. [Concomitant]
     Active Substance: OMEPRAZOLE
     Indication: OESOPHAGITIS
     Dosage: 40 MG, BID
     Route: 048
     Dates: start: 20160510
  17. PRESTARIUM                         /00790701/ [Concomitant]
     Active Substance: PERINDOPRIL
     Indication: CARDIAC FAILURE
     Dosage: 5 MG, UNK
     Route: 048
     Dates: start: 20160217
  18. CONTROLOC [Concomitant]
     Active Substance: PANTOPRAZOLE SODIUM
     Indication: VOMITING
     Dosage: 80 MG, BID
     Route: 042
     Dates: start: 20160411, end: 20160426
  19. CONTROLOC [Concomitant]
     Active Substance: PANTOPRAZOLE SODIUM
     Indication: HAEMATEMESIS
     Dosage: 80 MG, BID
     Route: 042
     Dates: start: 20160411, end: 20160426
  20. GASTROFAIT [Concomitant]
     Indication: OESOPHAGITIS
     Dosage: 1 G, TID
     Route: 048
     Dates: start: 20160510
  21. FUROSEMIDE                         /00032602/ [Concomitant]
     Active Substance: FUROSEMIDE
     Indication: CARDIAC FAILURE
     Dosage: 40 MG, BID
     Route: 042
     Dates: start: 20160317

REACTIONS (8)
  - Urinary retention [Recovered/Resolved]
  - Oedema peripheral [Recovered/Resolved]
  - Hiatus hernia [Unknown]
  - Haematemesis [Recovered/Resolved]
  - Cellulitis [Unknown]
  - Oesophagitis [Unknown]
  - Neuropathy peripheral [Recovering/Resolving]
  - Cardiac failure [Recovered/Resolved]

NARRATIVE: CASE EVENT DATE: 20160310
